FAERS Safety Report 4655978-8 (Version None)
Quarter: 2005Q2

REPORT INFORMATION
  Report Type: 
  Country: None (occurrence: None)
  Receive Date: 20050505
  Receipt Date: 20050422
  Transmission Date: 20051028
  Serious: Yes (Death, Hospitalization)
  Sender: FDA-Public Use
  Company Number: 2005051062

PATIENT
  Age: 85 Year
  Sex: Male

DRUGS (10)
  1. CABERGOLINE [Suspect]
     Indication: PARKINSON'S DISEASE
     Dosage: 2 MG (DAILY), ORAL
     Route: 048
     Dates: start: 20041110
  2. LISURIDE MALEATE (LISURIDE MALEATE) [Concomitant]
  3. MADOPAR (BENSERAZIDE HYDROCHLORIDE, LEVODOPA) [Concomitant]
  4. UBIDECARENONE (UBIDECARENONE) [Concomitant]
  5. TOCOPHEROL (TOCOPHEROL) [Concomitant]
  6. MEMANTINE HCL [Concomitant]
  7. SPIRONOLACTONE [Concomitant]
  8. NIFEDIPINE [Concomitant]
  9. VERAPAMIL [Concomitant]
  10. ENTACAPONE (ENTACAPONE) [Concomitant]

REACTIONS (2)
  - SPINAL FRACTURE [None]
  - SUDDEN DEATH [None]
